FAERS Safety Report 7126100-3 (Version None)
Quarter: 2010Q4

REPORT INFORMATION
  Report Type: 
  Country: None (occurrence: None)
  Receive Date: 20101129
  Receipt Date: 20101111
  Transmission Date: 20110411
  Serious: Yes (Other)
  Sender: FDA-Public Use
  Company Number: US-ASTRAZENECA-2010SE50202

PATIENT
  Age: 714 Month
  Sex: Female

DRUGS (5)
  1. OMEPRAZOLE [Interacting]
     Indication: DYSPEPSIA
     Route: 048
     Dates: start: 20100201
  2. RISPERIDONE [Interacting]
     Indication: SCHIZOPHRENIA
     Route: 048
     Dates: start: 20091101
  3. RISPERIDONE [Suspect]
     Route: 048
     Dates: start: 20080601
  4. RISPERIDONE [Interacting]
     Route: 048
  5. IMUVAC [Interacting]
     Dates: start: 20100901

REACTIONS (8)
  - ADVERSE DRUG REACTION [None]
  - DRUG INTERACTION [None]
  - DYSKINESIA [None]
  - EXTRAPYRAMIDAL DISORDER [None]
  - FATIGUE [None]
  - MUSCULOSKELETAL STIFFNESS [None]
  - RESTLESSNESS [None]
  - TREMOR [None]
